FAERS Safety Report 6077846-X (Version None)
Quarter: 2009Q1

REPORT INFORMATION
  Report Type: 
  Country: None (occurrence: None)
  Receive Date: 20090213
  Receipt Date: 20090130
  Transmission Date: 20090719
  Serious: Yes (Hospitalization)
  Sender: FDA-Public Use
  Company Number: US-ELI_LILLY_AND_COMPANY-US200901001606

PATIENT
  Sex: Female

DRUGS (22)
  1. FORTEO [Suspect]
     Indication: OSTEOPOROSIS
     Dosage: UNK, UNK
     Dates: start: 20070926, end: 20071101
  2. FORTEO [Suspect]
     Dosage: UNK, UNK
     Dates: start: 20071201, end: 20080101
  3. FORTEO [Suspect]
     Dosage: UNK, UNK
     Dates: start: 20080301, end: 20080701
  4. FORTEO [Suspect]
     Dosage: UNK, UNK
     Dates: start: 20081201
  5. PERCOCET [Concomitant]
  6. CALCIUM WITH VITAMIN D [Concomitant]
     Dosage: 600  2/D
  7. ASCORBIC ACID [Concomitant]
     Dosage: 500 MG, DAILY (1/D)
  8. WARFARIN SODIUM [Concomitant]
  9. CLONAZEPAM [Concomitant]
     Dosage: 2.0 MG IN AM
  10. CLONAZEPAM [Concomitant]
     Dosage: 1 MG AT 15:00
  11. CLONAZEPAM [Concomitant]
     Dosage: 1 UG, EACH EVENING
  12. THIAMINE HYDROCHLORIDE [Concomitant]
     Dosage: 100 MG, DAILY (1/D)
  13. METOPROLOL TARTRATE [Concomitant]
     Dosage: 25 MG, 2/D
  14. MIRTAZAPINE [Concomitant]
     Dosage: 30 MG, EACH EVENING
  15. NEXIUM [Concomitant]
     Dosage: 40 MG, EACH MORNING
  16. DULOXETINE [Concomitant]
     Indication: NERVOUSNESS
     Dosage: 60 MG, EACH MORNING
  17. SEROQUEL [Concomitant]
     Dosage: 25 MG, 2/D
  18. KEPPRA [Concomitant]
     Dosage: TWO TABLETS IN THE MORNING AND TWO TABLETS IN THE EVENING
  19. FOLIC ACID [Concomitant]
     Dosage: 1 MG, DAILY (1/D)
  20. SKELAXIN [Concomitant]
     Dosage: 800 MG, 2/D
  21. ONE A DAY ESSENTIAL [Concomitant]
  22. KLOR-CON M [Concomitant]
     Dosage: 10  2/D

REACTIONS (6)
  - ASTHENIA [None]
  - COGNITIVE DISORDER [None]
  - CYSTITIS [None]
  - GAIT DISTURBANCE [None]
  - MUSCULAR WEAKNESS [None]
  - PROCEDURAL PAIN [None]
